FAERS Safety Report 9354255 (Version 1)
Quarter: 2013Q2

REPORT INFORMATION
  Report Type: Spontaneous
  Country: GB (occurrence: None)
  Receive Date: 20130613
  Receipt Date: 20130613
  Transmission Date: 20140414
  Serious: Yes (Life-Threatening)
  Sender: FDA-Public Use
  Company Number: AUR-APL-2013-04683

PATIENT
  Age: 30 Year
  Sex: Female

DRUGS (2)
  1. AMOXICILLIN (AMOXICILLIN) [Suspect]
     Indication: TOOTH ABSCESS
     Route: 048
     Dates: start: 20130509, end: 20130514
  2. METRONIDAZOLE [Suspect]
     Indication: TOOTH ABSCESS
     Route: 048
     Dates: start: 20130509, end: 20130514

REACTIONS (4)
  - Depression [None]
  - Depressed mood [None]
  - Suicidal behaviour [None]
  - Drug interaction [None]
